FAERS Safety Report 8122149-2 (Version None)
Quarter: 2012Q1

REPORT INFORMATION
  Report Type: 
  Country: None (occurrence: None)
  Receive Date: 20120208
  Receipt Date: 20120131
  Transmission Date: 20120608
  Serious: Yes (Death)
  Sender: FDA-Public Use
  Company Number: US-ROCHE-1033947

PATIENT
  Sex: Male

DRUGS (2)
  1. TARCEVA [Suspect]
     Indication: PRODUCT USED FOR UNKNOWN INDICATION
  2. XELODA [Suspect]
     Indication: PRODUCT USED FOR UNKNOWN INDICATION

REACTIONS (1)
  - PANCREATIC CARCINOMA [None]
